FAERS Safety Report 6558798-2 (Version None)
Quarter: 2010Q1

REPORT INFORMATION
  Report Type: 
  Country: None (occurrence: None)
  Receive Date: 20100129
  Receipt Date: 20100118
  Transmission Date: 20100710
  Serious: Yes (Other)
  Sender: FDA-Public Use
  Company Number: PHHY2010GB04019

PATIENT

DRUGS (2)
  1. CLOZAPINE [Suspect]
  2. ZAPONEX [Concomitant]

REACTIONS (1)
  - EAR, NOSE AND THROAT EXAMINATION ABNORMAL [None]
